FAERS Safety Report 9146555 (Version 1)
Quarter: 2013Q1

REPORT INFORMATION
  Report Type: Spontaneous
  Country: US (occurrence: US)
  Receive Date: 20130307
  Receipt Date: 20130307
  Transmission Date: 20140127
  Serious: Yes (Other)
  Sender: FDA-Public Use
  Company Number: US-PFIZER INC-2013076633

PATIENT
  Age: 78 Year
  Sex: 0

DRUGS (4)
  1. NORVASC [Suspect]
     Dosage: 10 MG, 1X/DAY
  2. LIPITOR [Suspect]
     Dosage: 20 MG, 1X/DAY
  3. VIAGRA [Suspect]
     Dosage: 100 MG, AS NEEDED
  4. VICODIN [Suspect]
     Dosage: 7.5/500MG

REACTIONS (1)
  - Road traffic accident [Recovering/Resolving]
